FAERS Safety Report 7256924-3 (Version None)
Quarter: 2011Q1

REPORT INFORMATION
  Report Type: 
  Country: None (occurrence: None)
  Receive Date: 20110129
  Receipt Date: 20100713
  Transmission Date: 20110831
  Serious: No
  Sender: FDA-Public Use
  Company Number: US-ABBOTT-10P-163-0657020-00

PATIENT
  Age: 41 Year
  Sex: Female

DRUGS (3)
  1. ALLERGY MEDICATION [Concomitant]
     Indication: PRODUCT USED FOR UNKNOWN INDICATION
  2. HUMIRA [Suspect]
     Indication: PSORIASIS
     Dates: start: 20100415
  3. METFORMIN [Concomitant]
     Indication: DIABETES MELLITUS

REACTIONS (2)
  - LACERATION [None]
  - ACCIDENT AT WORK [None]
